FAERS Safety Report 19950691 (Version 2)
Quarter: 2021Q4

REPORT INFORMATION
  Report Type: Spontaneous
  Country: US (occurrence: US)
  Receive Date: 20211013
  Receipt Date: 20211019
  Transmission Date: 20220304
  Serious: No
  Sender: FDA-Public Use
  Company Number: US-PFIZER INC-2021346273

PATIENT
  Age: 46 Year
  Sex: Female
  Weight: 89.81 kg

DRUGS (1)
  1. EFFEXOR XR [Suspect]
     Active Substance: VENLAFAXINE HYDROCHLORIDE
     Dosage: UNK

REACTIONS (16)
  - Feeling jittery [Unknown]
  - Mobility decreased [Unknown]
  - Miosis [Unknown]
  - Visual impairment [Unknown]
  - Head discomfort [Unknown]
  - Headache [Unknown]
  - Bruxism [Unknown]
  - Bone pain [Unknown]
  - Muscle tightness [Unknown]
  - Neurological symptom [Unknown]
  - Middle insomnia [Unknown]
  - Dyskinesia [Unknown]
  - Nervousness [Unknown]
  - Dizziness [Unknown]
  - Thinking abnormal [Unknown]
  - Feeling abnormal [Unknown]
